FAERS Safety Report 12933471 (Version 1)
Quarter: 2016Q4

REPORT INFORMATION
  Report Type: Spontaneous
  Country: ID (occurrence: ID)
  Receive Date: 20161111
  Receipt Date: 20161111
  Transmission Date: 20170207
  Serious: Yes (Life-Threatening, Hospitalization)
  Sender: FDA-Public Use
  Company Number: ID-MALLINCKRODT-T201605655

PATIENT
  Sex: Female

DRUGS (1)
  1. EXALGO [Suspect]
     Active Substance: HYDROMORPHONE HYDROCHLORIDE
     Indication: CANCER PAIN
     Dosage: 16 MG, QD
     Route: 048

REACTIONS (2)
  - Respiratory depression [Recovered/Resolved]
  - Extra dose administered [Unknown]
